FAERS Safety Report 5640902-1 (Version None)
Quarter: 2008Q1

REPORT INFORMATION
  Report Type: 
  Country: None (occurrence: None)
  Receive Date: 20080227
  Receipt Date: 20080226
  Transmission Date: 20080703
  Serious: Yes (Life-Threatening, Hospitalization)
  Sender: FDA-Public Use
  Company Number: B0509866A

PATIENT
  Age: 61 Year
  Sex: Male
  Weight: 84 kg

DRUGS (1)
  1. AMOXICILLIN [Suspect]
     Indication: INFLUENZA LIKE ILLNESS
     Dosage: 1G THREE TIMES PER DAY
     Route: 048
     Dates: start: 20080208, end: 20080208

REACTIONS (3)
  - ANAPHYLACTIC REACTION [None]
  - DYSPNOEA [None]
  - MALAISE [None]
